FAERS Safety Report 7801938-5 (Version None)
Quarter: 2011Q4

REPORT INFORMATION
  Report Type: 
  Country: None (occurrence: None)
  Receive Date: 20111007
  Receipt Date: 20111007
  Transmission Date: 20120403
  Serious: Yes (Other)
  Sender: FDA-Public Use
  Company Number: None

PATIENT
  Sex: Male
  Weight: 75 kg

DRUGS (1)
  1. VICTRELIS [Suspect]
     Indication: HEPATITIS C
     Dosage: 800MG
     Route: 048
     Dates: start: 20110718, end: 20110801

REACTIONS (5)
  - HOMICIDAL IDEATION [None]
  - SUICIDAL IDEATION [None]
  - FATIGUE [None]
  - AGGRESSION [None]
  - PSYCHIATRIC SYMPTOM [None]
